FAERS Safety Report 8295583-8 (Version None)
Quarter: 2012Q2

REPORT INFORMATION
  Report Type: 
  Country: None (occurrence: None)
  Receive Date: 20120413
  Receipt Date: 20120413
  Transmission Date: 20120825
  Serious: No
  Sender: FDA-Public Use
  Company Number: None

PATIENT
  Age: 34 Year
  Sex: Female

DRUGS (1)
  1. ENBREL [Suspect]
     Indication: LIVER INJURY
     Dates: start: 20041220, end: 20050330

REACTIONS (6)
  - INFLUENZA LIKE ILLNESS [None]
  - MYALGIA [None]
  - HAEMATOCHEZIA [None]
  - INTERNATIONAL NORMALISED RATIO INCREASED [None]
  - HEPATITIS [None]
  - URINARY TRACT INFECTION [None]
